FAERS Safety Report 11288252 (Version 1)
Quarter: 2015Q3

REPORT INFORMATION
  Report Type: Spontaneous
  Country: US (occurrence: None)
  Receive Date: 20150720
  Receipt Date: 20150720
  Transmission Date: 20151125
  Serious: Yes (Hospitalization)
  Sender: FDA-Public Use
  Company Number: None

PATIENT
  Age: 65 Year
  Sex: Male
  Weight: 81.5 kg

DRUGS (1)
  1. LISINOPRIL. [Suspect]
     Active Substance: LISINOPRIL
     Indication: DRUG THERAPY
     Route: 048
     Dates: start: 20150506, end: 20150507

REACTIONS (9)
  - Angioedema [None]
  - Confusional state [None]
  - Incontinence [None]
  - Abnormal behaviour [None]
  - Delirium [None]
  - Wernicke^s encephalopathy [None]
  - Atrial fibrillation [None]
  - Laryngeal oedema [None]
  - Thrombocytopenia [None]

NARRATIVE: CASE EVENT DATE: 20150507
